FAERS Safety Report 14177614 (Version 1)
Quarter: 2017Q4

REPORT INFORMATION
  Report Type: Spontaneous
  Country: US (occurrence: US)
  Receive Date: 20171110
  Receipt Date: 20171110
  Transmission Date: 20180321
  Serious: Yes (Other)
  Sender: FDA-Public Use
  Company Number: US-BEH-2017084957

PATIENT
  Sex: Female
  Weight: 56.69 kg

DRUGS (4)
  1. BERINERT [Suspect]
     Active Substance: HUMAN C1-ESTERASE INHIBITOR
     Indication: HEREDITARY ANGIOEDEMA
     Dosage: 1000 IU, BIW (EVERY 3 DAYS)
     Route: 042
     Dates: start: 20170913
  2. BERINERT [Suspect]
     Active Substance: HUMAN C1-ESTERASE INHIBITOR
     Indication: PROPHYLAXIS
     Dosage: ADMINISTERED SCHEDULED DOSE
     Route: 042
  3. BERINERT [Suspect]
     Active Substance: HUMAN C1-ESTERASE INHIBITOR
     Dosage: UNK
     Route: 042
  4. FIRAZYR [Concomitant]
     Active Substance: ICATIBANT ACETATE

REACTIONS (1)
  - Hereditary angioedema [Unknown]
